FAERS Safety Report 6839898-6 (Version None)
Quarter: 2010Q2

REPORT INFORMATION
  Report Type: 
  Country: None (occurrence: None)
  Receive Date: 20100629
  Receipt Date: 20100408
  Transmission Date: 20101027
  Serious: Yes (Other)
  Sender: FDA-Public Use
  Company Number: US-WYE-H14531410

PATIENT
  Age: 45 Year
  Sex: Female
  Weight: 120.31 kg

DRUGS (2)
  1. PRISTIQ [Suspect]
     Indication: DEPRESSION
     Dosage: 50 MG 1X PER 1 DAY
     Dates: start: 20100201, end: 20100301
  2. CLONAZEPAM [Concomitant]

REACTIONS (1)
  - CHEST PAIN [None]
